FAERS Safety Report 21374919 (Version 1)
Quarter: 2022Q3

REPORT INFORMATION
  Report Type: Spontaneous
  Country: FR (occurrence: FR)
  Receive Date: 20220926
  Receipt Date: 20220926
  Transmission Date: 20221026
  Serious: Yes (Life-Threatening, Hospitalization, Other)
  Sender: FDA-Public Use
  Company Number: FR-002147023-NVSC2021FR148493

PATIENT
  Age: 35 Year
  Sex: Female
  Weight: 62 kg

DRUGS (3)
  1. LETROZOLE [Suspect]
     Active Substance: LETROZOLE
     Indication: Breast cancer
     Dosage: 2.5 MILLIGRAM, ONCE A DAY (QD)
     Route: 048
     Dates: start: 20191021, end: 20220501
  2. GOSERELIN [Suspect]
     Active Substance: GOSERELIN
     Indication: Breast cancer
     Dosage: 3.6 MILLIGRAM (Q4W)
     Route: 058
     Dates: start: 20210729, end: 20220405
  3. GOSERELIN [Suspect]
     Active Substance: GOSERELIN
     Dosage: 3.6 MILLIGRAM (Q4W)
     Route: 058
     Dates: start: 20191022, end: 20210628

REACTIONS (1)
  - Acute myeloid leukaemia [Recovered/Resolved]

NARRATIVE: CASE EVENT DATE: 20210629
